FAERS Safety Report 6865496-4 (Version None)
Quarter: 2010Q3

REPORT INFORMATION
  Report Type: 
  Country: None (occurrence: None)
  Receive Date: 20100721
  Receipt Date: 20080520
  Transmission Date: 20110219
  Serious: No
  Sender: FDA-Public Use
  Company Number: US-PFIZER INC-2008034492

PATIENT
  Age: 61 Year
  Sex: Female
  Weight: 66.22 kg

DRUGS (6)
  1. CHANTIX [Suspect]
     Indication: SMOKING CESSATION THERAPY
     Route: 048
     Dates: start: 20080331, end: 20080416
  2. PLAVIX [Concomitant]
  3. VYTORIN [Concomitant]
  4. ATENOLOL [Concomitant]
  5. LISINOPRIL [Concomitant]
  6. AVANDAMET [Concomitant]

REACTIONS (2)
  - NAUSEA [None]
  - VOMITING [None]
